FAERS Safety Report 18289225 (Version 1)
Quarter: 2020Q3

REPORT INFORMATION
  Report Type: Spontaneous
  Country: US (occurrence: US)
  Receive Date: 20200921
  Receipt Date: 20200921
  Transmission Date: 20201103
  Serious: Yes (Other)
  Sender: FDA-Public Use
  Company Number: None

PATIENT
  Age: 52 Year
  Sex: Female
  Weight: 72 kg

DRUGS (2)
  1. IBRANCE [Suspect]
     Active Substance: PALBOCICLIB
     Indication: BREAST CANCER METASTATIC
     Dosage: ?
     Route: 048
  2. FASLODEX [Concomitant]
     Active Substance: FULVESTRANT

REACTIONS (4)
  - Nausea [None]
  - Skin exfoliation [None]
  - Dysgeusia [None]
  - Headache [None]

NARRATIVE: CASE EVENT DATE: 20200624
